FAERS Safety Report 19811487 (Version 2)
Quarter: 2021Q3

REPORT INFORMATION
  Report Type: Spontaneous
  Country: US (occurrence: US)
  Receive Date: 20210910
  Receipt Date: 20210921
  Transmission Date: 20211014
  Serious: No
  Sender: FDA-Public Use
  Company Number: US-NEUROCRINE BIOSCIENCES INC.-2021NBI04912

PATIENT

DRUGS (1)
  1. ONGENTYS [Suspect]
     Active Substance: OPICAPONE
     Indication: PARKINSON^S DISEASE
     Dosage: 50 MILLIGRAM
     Route: 048
     Dates: start: 202103

REACTIONS (6)
  - Fatigue [Unknown]
  - Balance disorder [Unknown]
  - Therapeutic response unexpected [Unknown]
  - Hypotension [Unknown]
  - Hyperkinesia [Unknown]
  - Headache [Unknown]

NARRATIVE: CASE EVENT DATE: 2021
